FAERS Safety Report 7449530-9 (Version None)
Quarter: 2011Q2

REPORT INFORMATION
  Report Type: 
  Country: None (occurrence: None)
  Receive Date: 20110502
  Receipt Date: 20110425
  Transmission Date: 20111010
  Serious: Yes (Disabling)
  Sender: FDA-Public Use
  Company Number: US-BAYER-2011-021749

PATIENT
  Age: 78 Year
  Sex: Male

DRUGS (2)
  1. NEXAVAR [Suspect]
     Indication: RENAL CELL CARCINOMA
     Dosage: 400 MG, BID
     Route: 048
     Dates: start: 20110225, end: 20110307
  2. NEXAVAR [Suspect]
     Dosage: 200 MG, BID
     Dates: start: 20110401

REACTIONS (4)
  - SKIN EXFOLIATION [None]
  - ABASIA [None]
  - BLISTER [None]
  - OEDEMA PERIPHERAL [None]
